FAERS Safety Report 25645062 (Version 3)
Quarter: 2025Q3

REPORT INFORMATION
  Report Type: Spontaneous
  Country: US (occurrence: US)
  Receive Date: 20250805
  Receipt Date: 20250925
  Transmission Date: 20251021
  Serious: No
  Sender: SANOFI AVENTIS
  Company Number: US-SA-2025SA228554

PATIENT
  Sex: Female
  Weight: 61.36 kg

DRUGS (9)
  1. DUPIXENT [Suspect]
     Active Substance: DUPILUMAB
     Indication: Dermatitis atopic
     Dosage: 300 MG, QOW
     Route: 058
  2. FOSAMAX [Concomitant]
     Active Substance: ALENDRONATE SODIUM
  3. LEVOTHYROXINE SODIUM [Concomitant]
     Active Substance: LEVOTHYROXINE SODIUM
  4. ROSUVASTATIN CALCIUM [Concomitant]
     Active Substance: ROSUVASTATIN CALCIUM
  5. CALCIUM CARBONATE\CHOLECALCIFEROL [Concomitant]
     Active Substance: CALCIUM CARBONATE\CHOLECALCIFEROL
  6. COSMETICS [Concomitant]
     Active Substance: COSMETICS
  7. VITAMINS NOS [Concomitant]
     Active Substance: VITAMINS
     Dosage: UNK UNK, QD
  8. ASPIRIN [Concomitant]
     Active Substance: ASPIRIN
  9. COENZYME Q10 [Concomitant]
     Active Substance: DIETARY SUPPLEMENT\UBIDECARENONE

REACTIONS (10)
  - Keratosis pilaris [Not Recovered/Not Resolved]
  - Headache [Not Recovered/Not Resolved]
  - Pruritus [Not Recovered/Not Resolved]
  - Dermatitis atopic [Not Recovered/Not Resolved]
  - Rash [Not Recovered/Not Resolved]
  - Acne [Unknown]
  - Pruritus [Unknown]
  - Skin swelling [Unknown]
  - Scratch [Unknown]
  - Fatigue [Unknown]
